FAERS Safety Report 24829433 (Version 2)
Quarter: 2025Q1

REPORT INFORMATION
  Report Type: Report from Study
  Country: CA (occurrence: CA)
  Receive Date: 20250110
  Receipt Date: 20250219
  Transmission Date: 20250408
  Serious: Yes (Other)
  Sender: TAKEDA
  Company Number: CA-TAKEDA-2022TUS096777

PATIENT
  Sex: Male

DRUGS (8)
  1. VEDOLIZUMAB [Suspect]
     Active Substance: VEDOLIZUMAB
     Indication: Colitis ulcerative
  2. VEDOLIZUMAB [Suspect]
     Active Substance: VEDOLIZUMAB
     Dosage: 300 MILLIGRAM, Q4WEEKS
     Dates: start: 202110
  3. VEDOLIZUMAB [Suspect]
     Active Substance: VEDOLIZUMAB
     Dosage: 300 MILLIGRAM, Q4WEEKS
  4. PERINDOPRIL [Concomitant]
     Active Substance: PERINDOPRIL
     Dosage: UNK UNK, QD
  5. INDAPAMIDE [Concomitant]
     Active Substance: INDAPAMIDE
     Dosage: UNK UNK, QD
  6. ROSUVASTATIN [Concomitant]
     Active Substance: ROSUVASTATIN
  7. ENTOCORT [Concomitant]
     Active Substance: BUDESONIDE
  8. PREDNISONE [Concomitant]
     Active Substance: PREDNISONE

REACTIONS (5)
  - Haematochezia [Not Recovered/Not Resolved]
  - Defaecation urgency [Not Recovered/Not Resolved]
  - Drug ineffective [Not Recovered/Not Resolved]
  - Gastrointestinal inflammation [Unknown]
  - Off label use [Unknown]
